FAERS Safety Report 22535021 (Version 1)
Quarter: 2023Q2

REPORT INFORMATION
  Report Type: Spontaneous
  Country: JP (occurrence: JP)
  Receive Date: 20230608
  Receipt Date: 20230608
  Transmission Date: 20230721
  Serious: Yes (Other)
  Sender: FDA-Public Use
  Company Number: JP-BRISTOL-MYERS SQUIBB COMPANY-2023-077885

PATIENT

DRUGS (1)
  1. SPRYCEL [Suspect]
     Active Substance: DASATINIB
     Indication: Chronic myeloid leukaemia
     Route: 048

REACTIONS (4)
  - Intervertebral disc protrusion [Unknown]
  - Haemorrhagic diathesis [Unknown]
  - Platelet count increased [Unknown]
  - Von Willebrand^s factor activity decreased [Recovering/Resolving]
